FAERS Safety Report 9438168 (Version 1)
Quarter: 2013Q3

REPORT INFORMATION
  Report Type: Report from Study
  Country: US (occurrence: US)
  Receive Date: 20130802
  Receipt Date: 20130802
  Transmission Date: 20140515
  Serious: Yes (Hospitalization, Disabling)
  Sender: FDA-Public Use
  Company Number: US-ABBOTT-13P-163-1124834-00

PATIENT
  Age: 61 Year
  Sex: Female
  Weight: 79.45 kg

DRUGS (7)
  1. HUMIRA [Suspect]
     Indication: RHEUMATOID ARTHRITIS
     Route: 058
     Dates: start: 2010, end: 201205
  2. HUMIRA [Suspect]
     Route: 058
     Dates: start: 201207
  3. METHOTREXATE [Concomitant]
     Indication: RHEUMATOID ARTHRITIS
  4. COREG [Concomitant]
     Indication: HYPERTENSION
  5. FOLIC ACID [Concomitant]
     Indication: VITAMIN SUPPLEMENTATION
  6. COQ10 [Concomitant]
     Indication: PRODUCT USED FOR UNKNOWN INDICATION
  7. OMEGA 3 [Concomitant]
     Indication: PRODUCT USED FOR UNKNOWN INDICATION

REACTIONS (8)
  - Cerebrovascular accident [Not Recovered/Not Resolved]
  - Dysstasia [Recovering/Resolving]
  - Asthenia [Not Recovered/Not Resolved]
  - VIIth nerve paralysis [Recovered/Resolved]
  - Asthenia [Recovering/Resolving]
  - Paralysis [Not Recovered/Not Resolved]
  - Movement disorder [Not Recovered/Not Resolved]
  - Neuralgia [Not Recovered/Not Resolved]
